FAERS Safety Report 6654004-9 (Version None)
Quarter: 2010Q1

REPORT INFORMATION
  Report Type: 
  Country: None (occurrence: None)
  Receive Date: 20100326
  Receipt Date: 20100312
  Transmission Date: 20100710
  Serious: Yes (Hospitalization, Other)
  Sender: FDA-Public Use
  Company Number: US-ELI_LILLY_AND_COMPANY-US201002004176

PATIENT
  Age: 83 Year
  Sex: Female

DRUGS (7)
  1. FORTEO [Suspect]
     Indication: OSTEOPOROSIS
     Dosage: 20 UG, DAILY (1/D)
  2. WARFARIN SODIUM [Concomitant]
  3. ARICEPT [Concomitant]
  4. METOPROLOL [Concomitant]
  5. TYLENOL (CAPLET) [Concomitant]
  6. AVALIDE [Concomitant]
  7. SIMVASTATIN [Concomitant]

REACTIONS (6)
  - FACIAL BONES FRACTURE [None]
  - FALL [None]
  - INFLUENZA [None]
  - PNEUMONIA ASPIRATION [None]
  - RIB FRACTURE [None]
  - WRIST FRACTURE [None]
